FAERS Safety Report 18252117 (Version 1)
Quarter: 2020Q3

REPORT INFORMATION
  Report Type: Spontaneous
  Country: US (occurrence: US)
  Receive Date: 20200910
  Receipt Date: 20200910
  Transmission Date: 20201103
  Serious: No
  Sender: FDA-Public Use
  Company Number: US-FARMAPROD-202003-0254

PATIENT
  Sex: Male

DRUGS (1)
  1. OXERVATE [Suspect]
     Active Substance: CENEGERMIN-BKBJ
     Indication: NEUROTROPHIC KERATOPATHY
     Route: 047
     Dates: start: 20200224, end: 202004

REACTIONS (7)
  - Ocular hyperaemia [Unknown]
  - Eyelid pain [Unknown]
  - Vision blurred [Unknown]
  - Accidental overdose [Unknown]
  - Foreign body sensation in eyes [Unknown]
  - Eyelid irritation [Unknown]
  - Eye pain [Not Recovered/Not Resolved]
